FAERS Safety Report 15011921 (Version 1)
Quarter: 2018Q2

REPORT INFORMATION
  Report Type: Spontaneous
  Country: US (occurrence: US)
  Receive Date: 20180614
  Receipt Date: 20180614
  Transmission Date: 20180711
  Serious: No
  Sender: FDA-Public Use
  Company Number: US-009507513-1806USA005816

PATIENT
  Sex: Male

DRUGS (2)
  1. CLOTRIMAZOLE (+) BETAMETHASONE DIPROPIONATE [Suspect]
     Active Substance: BETAMETHASONE DIPROPIONATE\CLOTRIMAZOLE
     Indication: THERAPEUTIC SKIN CARE TOPICAL
     Dosage: 1 DF, ONCE
     Route: 061
     Dates: start: 20180609, end: 20180609
  2. CLOTRIMAZOLE (+) BETAMETHASONE DIPROPIONATE [Suspect]
     Active Substance: BETAMETHASONE DIPROPIONATE\CLOTRIMAZOLE
     Indication: TINEA CRURIS

REACTIONS (2)
  - Expired product administered [Recovered/Resolved]
  - Genital swelling [Recovered/Resolved]

NARRATIVE: CASE EVENT DATE: 20180609
